FAERS Safety Report 18811134 (Version 2)
Quarter: 2021Q1

REPORT INFORMATION
  Report Type: Spontaneous
  Country: CA (occurrence: CA)
  Receive Date: 20210129
  Receipt Date: 20210216
  Transmission Date: 20210419
  Serious: No
  Sender: FDA-Public Use
  Company Number: CA-BAUSCH-BL-2021-002785

PATIENT
  Sex: Male
  Weight: 85 kg

DRUGS (21)
  1. DIPHENHYDRAMINE. [Suspect]
     Active Substance: DIPHENHYDRAMINE
     Route: 048
  2. VALPROIC ACID. [Concomitant]
     Active Substance: VALPROIC ACID
     Indication: SEIZURE
  3. DIAZEPAM. [Interacting]
     Active Substance: DIAZEPAM
     Dosage: DAY 74
     Route: 048
  4. DIAZEPAM. [Interacting]
     Active Substance: DIAZEPAM
     Dosage: ADDITIONAL DOSE
     Route: 048
  5. DIAZEPAM. [Interacting]
     Active Substance: DIAZEPAM
     Dosage: 2 DOSES, 1 HOUR APART
     Route: 048
  6. DIAZEPAM. [Suspect]
     Active Substance: DIAZEPAM
     Indication: SEIZURE
     Route: 048
  7. CARBAMAZEPINE. [Concomitant]
     Active Substance: CARBAMAZEPINE
     Indication: SEIZURE
  8. DIPHENHYDRAMINE. [Suspect]
     Active Substance: DIPHENHYDRAMINE
     Indication: AGITATION
     Route: 048
  9. DIAZEPAM. [Interacting]
     Active Substance: DIAZEPAM
     Dosage: TAPERED DOSE
     Route: 048
  10. DIAZEPAM. [Interacting]
     Active Substance: DIAZEPAM
     Dosage: 10 MG IN THE MORNING, 80 MG AT 3:00 PM
     Route: 048
  11. DIAZEPAM. [Interacting]
     Active Substance: DIAZEPAM
     Dosage: DAY BEFORE THE APPOINTMENT
     Route: 048
  12. TEMAZEPAM. [Concomitant]
     Active Substance: TEMAZEPAM
     Indication: SEIZURE
     Dosage: RAPID WITHDRAWAL FROM HIGH DOSES
  13. DIAZEPAM. [Interacting]
     Active Substance: DIAZEPAM
     Dosage: ADDITIONAL DOSE
     Route: 048
  14. DIAZEPAM. [Interacting]
     Active Substance: DIAZEPAM
     Dosage: 1 H PRIOR TO APPOINTMENT
     Route: 048
  15. DIAZEPAM. [Interacting]
     Active Substance: DIAZEPAM
     Dosage: TAPERED DOSE
     Route: 048
  16. VALPROIC ACID. [Concomitant]
     Active Substance: VALPROIC ACID
  17. VALPROIC ACID. [Concomitant]
     Active Substance: VALPROIC ACID
  18. DIAZEPAM. [Interacting]
     Active Substance: DIAZEPAM
     Dosage: REPEATED DOSE FOR THE SECOND AND THIRD DENTAL VISITS, RESPECTIVELY ONE WEEK AND TWO WEEKS LATER
     Route: 048
  19. DIAZEPAM. [Interacting]
     Active Substance: DIAZEPAM
     Route: 048
  20. LORAZEPAM. [Suspect]
     Active Substance: LORAZEPAM
     Indication: AGITATION
     Route: 048
  21. PHENYTOIN. [Concomitant]
     Active Substance: PHENYTOIN
     Indication: SEIZURE

REACTIONS (3)
  - Ataxia [Unknown]
  - Therapy non-responder [Unknown]
  - Toxicity to various agents [Unknown]
